FAERS Safety Report 7938736-8 (Version None)
Quarter: 2011Q4

REPORT INFORMATION
  Report Type: 
  Country: None (occurrence: None)
  Receive Date: 20111124
  Receipt Date: 20111121
  Transmission Date: 20120403
  Serious: Yes (Hospitalization)
  Sender: FDA-Public Use
  Company Number: US-BIOGENIDEC-2011BI044605

PATIENT
  Age: 69 Year
  Sex: Female

DRUGS (4)
  1. POTASSIUM SUPPLEMENTS [Concomitant]
     Indication: PROPHYLAXIS
     Dates: end: 20110801
  2. AVONEX [Suspect]
     Route: 030
     Dates: start: 20030801
  3. AVONEX [Suspect]
     Indication: MULTIPLE SCLEROSIS
     Route: 030
     Dates: start: 19970701, end: 20030801
  4. TRIAMTERENE [Concomitant]
     Indication: HYPERTENSION
     Dates: end: 20110801

REACTIONS (5)
  - INFUSION SITE PAIN [None]
  - BLOOD POTASSIUM DECREASED [None]
  - DYSKINESIA [None]
  - MEMORY IMPAIRMENT [None]
  - CONFUSIONAL STATE [None]
